FAERS Safety Report 9001523 (Version 4)
Quarter: 2014Q1

REPORT INFORMATION
  Report Type: Spontaneous
  Country: GB (occurrence: GB)
  Receive Date: 20130107
  Receipt Date: 20140124
  Transmission Date: 20141002
  Serious: Yes (Hospitalization, Other)
  Sender: FDA-Public Use
  Company Number: GB-PFIZER INC-2013001033

PATIENT
  Age: 58 Year
  Sex: Male

DRUGS (7)
  1. MIRTAZAPINE [Suspect]
     Indication: DEPRESSION
     Dosage: 45 MG, DAILY AT NIGHT
     Route: 048
  2. VENLAFAXINE HCL [Suspect]
     Indication: DEPRESSION
     Dosage: 75 MG, 1X/DAY MODIFIED RELEASE
     Route: 048
  3. LAMOTRIGINE [Suspect]
     Indication: DEPRESSED MOOD
     Dosage: 100 MG, ONCE DAILLY
     Route: 048
  4. ZAPONEX [Suspect]
     Indication: SCHIZOPHRENIA
     Dosage: 225 MG, 1X/DAY AT NIGHT
     Route: 048
     Dates: start: 20120806, end: 20130823
  5. KWELLS [Suspect]
     Indication: SALIVARY HYPERSECRETION
     Dosage: 300 UG, AT NIGHT
     Route: 060
  6. ARIPIPRAZOLE [Suspect]
     Indication: SCHIZOPHRENIA
     Dosage: 30 MG, 1X/DAY
     Route: 048
  7. PROCYCLIDINE [Suspect]
     Indication: EXTRAPYRAMIDAL DISORDER
     Dosage: 10 MG, AT NIGHT
     Route: 048

REACTIONS (12)
  - Full blood count abnormal [Recovered/Resolved]
  - Lymphocyte count decreased [Not Recovered/Not Resolved]
  - Mean cell haemoglobin decreased [Not Recovered/Not Resolved]
  - Neutropenia [Recovered/Resolved]
  - White blood cell count decreased [Recovered/Resolved]
  - Leukopenia [Recovered/Resolved]
  - Platelet count decreased [Recovered/Resolved]
  - Mean cell volume decreased [Not Recovered/Not Resolved]
  - Red blood cell count decreased [Not Recovered/Not Resolved]
  - Neutrophil count decreased [Recovered/Resolved]
  - Haematocrit decreased [Not Recovered/Not Resolved]
  - Anaemia [Not Recovered/Not Resolved]
